FAERS Safety Report 8615948-1 (Version None)
Quarter: 2012Q3

REPORT INFORMATION
  Report Type: 
  Country: None (occurrence: None)
  Receive Date: 20120823
  Receipt Date: 20120820
  Transmission Date: 20120928
  Serious: Yes (Hospitalization)
  Sender: FDA-Public Use
  Company Number: GB-ROCHE-1015315

PATIENT
  Sex: Male

DRUGS (16)
  1. LUCENTIS [Suspect]
     Route: 050
     Dates: start: 20110915, end: 20110915
  2. ATORVASTATIN [Concomitant]
     Dates: start: 20010330, end: 20120617
  3. AVASTIN [Suspect]
     Indication: DIABETIC RETINAL OEDEMA
  4. NOVOLOG MIX 70/30 [Concomitant]
     Dates: start: 20090611, end: 20120617
  5. LUCENTIS [Suspect]
     Indication: DIABETIC RETINAL OEDEMA
     Dosage: LAST DOSE PRIOR TO AE ONSET ON 13/JUL/2011
     Route: 050
     Dates: start: 20110217
  6. METFORMIN [Concomitant]
     Dates: start: 20040914
  7. LUCENTIS [Suspect]
     Route: 050
     Dates: start: 20110421, end: 20110421
  8. ASPIRIN [Concomitant]
     Dates: start: 20110806, end: 20111030
  9. METFORMIN [Concomitant]
     Dates: start: 20090611, end: 20120617
  10. ISOSORBIDE MONONITRATE [Concomitant]
     Dates: start: 20060105, end: 20120117
  11. DIPYRIDAMOLE [Concomitant]
     Dates: start: 20051216, end: 20111030
  12. LUCENTIS [Suspect]
     Route: 050
     Dates: start: 20110314, end: 20110314
  13. LUCENTIS [Suspect]
     Route: 050
     Dates: start: 20110519, end: 20110519
  14. LUCENTIS [Suspect]
     Route: 050
     Dates: start: 20110613, end: 20110613
  15. IRBESARTAN [Concomitant]
     Dates: start: 20061031, end: 20120617
  16. FUROSEMIDE [Concomitant]
     Dates: start: 20071205

REACTIONS (7)
  - TRANSIENT ISCHAEMIC ATTACK [None]
  - HYPOAESTHESIA [None]
  - CONCOMITANT DISEASE PROGRESSION [None]
  - CONFUSIONAL STATE [None]
  - INAPPROPRIATE SCHEDULE OF DRUG ADMINISTRATION [None]
  - APHASIA [None]
  - CEREBROVASCULAR ACCIDENT [None]
